FAERS Safety Report 19966019 (Version 3)
Quarter: 2021Q4

REPORT INFORMATION
  Report Type: Spontaneous
  Country: SK (occurrence: SK)
  Receive Date: 20211018
  Receipt Date: 20211109
  Transmission Date: 20220303
  Serious: Yes (Death)
  Sender: FDA-Public Use
  Company Number: SK-PFIZER INC-202101315274

PATIENT
  Age: 31 Year

DRUGS (5)
  1. INOTUZUMAB OZOGAMICIN [Suspect]
     Active Substance: INOTUZUMAB OZOGAMICIN
     Indication: Acute lymphocytic leukaemia
     Dosage: UNK
     Dates: start: 20201109
  2. CYTARABINE [Suspect]
     Active Substance: CYTARABINE
     Dosage: 0,5 G/M2 X 4 DOSES
     Dates: start: 20201109
  3. CYCLOPHOSPHAMIDE [Suspect]
     Active Substance: CYCLOPHOSPHAMIDE
     Indication: Acute lymphocytic leukaemia
     Dosage: AT 50% DOSE REDUCTION
     Dates: start: 20201109
  4. DEXAMETHASONE [Suspect]
     Active Substance: DEXAMETHASONE
     Indication: Acute lymphocytic leukaemia
     Dosage: AT 50% DOSE REDUCTION
     Dates: start: 20201109
  5. METHOTREXATE [Suspect]
     Active Substance: METHOTREXATE
     Indication: Acute lymphocytic leukaemia
     Dosage: AT 75% DOSE REDUCTION
     Dates: start: 20201109

REACTIONS (2)
  - COVID-19 [Fatal]
  - Off label use [Unknown]
